FAERS Safety Report 6638017-9 (Version None)
Quarter: 2010Q1

REPORT INFORMATION
  Report Type: 
  Country: None (occurrence: None)
  Receive Date: 20100312
  Receipt Date: 20100301
  Transmission Date: 20100710
  Serious: Yes (Death, Disabling)
  Sender: FDA-Public Use
  Company Number: 96080

PATIENT
  Sex: Female

DRUGS (1)
  1. PAMIDRONATE DISODIUM [Suspect]

REACTIONS (2)
  - MULTIPLE INJURIES [None]
  - OSTEONECROSIS [None]
